FAERS Safety Report 9730500 (Version 2)
Quarter: 2013Q4

REPORT INFORMATION
  Report Type: Spontaneous
  Country: GB (occurrence: GB)
  Receive Date: 20131202
  Receipt Date: 20131202
  Transmission Date: 20140711
  Serious: Yes (Death, Life-Threatening, Other)
  Sender: FDA-Public Use
  Company Number: GB-BRISTOL-MYERS SQUIBB COMPANY-18520569

PATIENT
  Age: 59 Year
  Sex: Male
  Weight: 95 kg

DRUGS (11)
  1. BYETTA PEN DISPOSABLE [Suspect]
     Indication: TYPE 2 DIABETES MELLITUS
     Dates: start: 200806
  2. DOXAZOSIN [Suspect]
  3. METFORMIN [Concomitant]
     Indication: TYPE 2 DIABETES MELLITUS
     Dates: start: 199609
  4. AMLODIPINE [Concomitant]
  5. ASPIRIN [Concomitant]
  6. CIPROFIBRATE [Concomitant]
  7. CO-CODAMOL [Concomitant]
  8. ENALAPRIL [Concomitant]
  9. GLICLAZIDE [Concomitant]
  10. PRAVASTATIN SODIUM [Concomitant]
  11. ANTIBIOTICS [Concomitant]
     Indication: INFLUENZA

REACTIONS (20)
  - Cardiopulmonary failure [Fatal]
  - Bronchopneumonia [Fatal]
  - Cardiomegaly [Unknown]
  - Cardiac failure congestive [Unknown]
  - Renal impairment [Unknown]
  - Obstructive airways disorder [Unknown]
  - Lower respiratory tract infection [Unknown]
  - Chronic obstructive pulmonary disease [Unknown]
  - Cough [Unknown]
  - Diabetic microangiopathy [Unknown]
  - Dyslipidaemia [Unknown]
  - Cardiac disorder [Unknown]
  - Hypertension [Unknown]
  - Nausea [Unknown]
  - Liver function test abnormal [Unknown]
  - Systolic dysfunction [Unknown]
  - Glycosylated haemoglobin increased [Unknown]
  - Influenza [Unknown]
  - Dizziness [Unknown]
  - Vomiting [Unknown]
